FAERS Safety Report 11214989 (Version 4)
Quarter: 2015Q3

REPORT INFORMATION
  Report Type: Spontaneous
  Country: JP (occurrence: JP)
  Receive Date: 20150624
  Receipt Date: 20150925
  Transmission Date: 20151125
  Serious: Yes (Other)
  Sender: FDA-Public Use
  Company Number: PHJP2015JP010205

PATIENT
  Age: 67 Year
  Sex: Female

DRUGS (13)
  1. ZOMETA [Suspect]
     Active Substance: ZOLEDRONIC ACID
     Indication: METASTASES TO BONE
     Route: 042
     Dates: start: 201004
  2. ABRAXANE [Concomitant]
     Active Substance: PACLITAXEL
     Indication: CHEMOTHERAPY
     Route: 065
     Dates: start: 20100402
  3. LAPATINIB [Concomitant]
     Active Substance: LAPATINIB
     Indication: CHEMOTHERAPY
     Route: 065
     Dates: start: 20100402
  4. HALAVEN [Concomitant]
     Active Substance: ERIBULIN MESYLATE
     Indication: CHEMOTHERAPY
     Route: 065
     Dates: start: 20100402
  5. TAXOTERE [Concomitant]
     Active Substance: DOCETAXEL
     Indication: CHEMOTHERAPY
     Route: 065
     Dates: start: 20100402
  6. ZOMETA [Suspect]
     Active Substance: ZOLEDRONIC ACID
     Indication: BREAST CANCER RECURRENT
  7. DECADRON [Concomitant]
     Active Substance: DEXAMETHASONE
     Indication: PRODUCT USED FOR UNKNOWN INDICATION
     Route: 065
     Dates: start: 20100525
  8. TS-1 [Concomitant]
     Active Substance: GIMERACIL\OTERACIL\TEGAFUR
     Indication: CHEMOTHERAPY
     Route: 065
     Dates: start: 20100402
  9. VINORELBINE [Concomitant]
     Active Substance: VINORELBINE\VINORELBINE TARTRATE
     Indication: CHEMOTHERAPY
     Route: 065
     Dates: start: 20100402
  10. PERJETA [Concomitant]
     Active Substance: PERTUZUMAB
     Indication: CHEMOTHERAPY
     Route: 065
     Dates: start: 20100402
  11. KADCYLA [Concomitant]
     Active Substance: ADO-TRASTUZUMAB EMTANSINE
     Indication: CHEMOTHERAPY
     Route: 065
     Dates: start: 20100402
  12. AROMASIN [Concomitant]
     Active Substance: EXEMESTANE
     Indication: CHEMOTHERAPY
     Route: 065
     Dates: start: 20100402
  13. XELODA [Concomitant]
     Active Substance: CAPECITABINE
     Indication: CHEMOTHERAPY
     Route: 065
     Dates: start: 20100402

REACTIONS (7)
  - Aphthous ulcer [Recovered/Resolved]
  - Swelling [Recovered/Resolved]
  - Mouth ulceration [Recovered/Resolved]
  - Discomfort [Recovered/Resolved]
  - Exostosis of jaw [Recovered/Resolved]
  - Erythema [Recovered/Resolved]
  - Osteonecrosis of jaw [Recovered/Resolved]

NARRATIVE: CASE EVENT DATE: 201008
